FAERS Safety Report 19241618 (Version 2)
Quarter: 2021Q2

REPORT INFORMATION
  Report Type: Spontaneous
  Country: CH (occurrence: CH)
  Receive Date: 20210511
  Receipt Date: 20210512
  Transmission Date: 20210717
  Serious: Yes (Hospitalization)
  Sender: FDA-Public Use
  Company Number: CH-MYLANLABS-2021M1027125

PATIENT
  Age: 72 Year
  Sex: Male
  Weight: 63.8 kg

DRUGS (19)
  1. CLOPIDOGREL [Concomitant]
     Active Substance: CLOPIDOGREL BISULFATE
     Dosage: 75 MILLIGRAM, QD
     Route: 048
  2. RAMIPRIL. [Concomitant]
     Active Substance: RAMIPRIL
     Dosage: 2.5 MILLIGRAM, QD
     Route: 048
     Dates: start: 20210321, end: 20210401
  3. VI?DE 3 [Concomitant]
     Active Substance: CHOLECALCIFEROL
     Dosage: 10 MILLILITER, QW
     Route: 048
     Dates: start: 20210324, end: 20210324
  4. TOREM [Suspect]
     Active Substance: TORSEMIDE
     Indication: PRODUCT USED FOR UNKNOWN INDICATION
     Dosage: 5 MILLIGRAM, QD
     Route: 048
     Dates: start: 20170601
  5. TAVEGYL [Concomitant]
     Active Substance: CLEMASTINE FUMARATE
     Indication: PRURITUS
     Dosage: 4 MILLIGRAM, QD (2 SEPARATED DOSES)
     Route: 042
     Dates: start: 20210321, end: 20210326
  6. LISINOPRIL. [Suspect]
     Active Substance: LISINOPRIL
     Indication: PRODUCT USED FOR UNKNOWN INDICATION
     Dosage: 10 MILLIGRAM, QD
     Route: 048
  7. TRAMADOL. [Concomitant]
     Active Substance: TRAMADOL
     Dosage: UP TO 50 MG 3X PER DAY, PRN
     Route: 048
     Dates: start: 20210326, end: 20210401
  8. CLEXANE [Concomitant]
     Active Substance: ENOXAPARIN SODIUM
     Dosage: 40 MILLIGRAM, QD
     Route: 058
     Dates: start: 20210324, end: 20210401
  9. SICORTEN PLUS [Concomitant]
     Dosage: 1 APPLICATION 2X PER DAY
     Route: 003
     Dates: start: 20210321, end: 20210322
  10. DERMOVATE [Concomitant]
     Active Substance: CLOBETASOL
     Dosage: 1 APPLICATION 2X PER DAY
     Route: 003
     Dates: start: 20210322, end: 20210401
  11. ATORVASTATINE                      /01326101/ [Concomitant]
     Active Substance: ATORVASTATIN
     Dosage: 20 MILLIGRAM, QD
     Route: 048
  12. METOPROLOL. [Concomitant]
     Active Substance: METOPROLOL
     Dosage: 50 MILLIGRAM, QD
     Route: 048
  13. PREDNISONE. [Concomitant]
     Active Substance: PREDNISONE
     Dosage: 70 MILLIGRAM, QD
     Route: 048
     Dates: start: 20210321, end: 20210324
  14. ATARAX [Concomitant]
     Active Substance: HYDROXYZINE HYDROCHLORIDE
     Dosage: 25 MILLIGRAM, QD
     Route: 048
     Dates: start: 20210328, end: 20210401
  15. CETALLERG [Concomitant]
     Active Substance: CETIRIZINE HYDROCHLORIDE
     Dosage: 10 MILLIGRAM, QD
     Route: 048
     Dates: start: 20210326, end: 20210401
  16. APRANAX                            /00256201/ [Suspect]
     Active Substance: NAPROXEN
     Indication: PRODUCT USED FOR UNKNOWN INDICATION
     Dosage: 550 MILLIGRAM, PRN (PRN UP TO 3X 550 MG ; AS NECESSARY)
     Route: 048
     Dates: start: 20190101, end: 20210321
  17. PREDNISONE. [Concomitant]
     Active Substance: PREDNISONE
     Dosage: 50 MILLIGRAM, QD
     Route: 048
     Dates: start: 20210329, end: 20210401
  18. DAFALGAN [Concomitant]
     Active Substance: ACETAMINOPHEN
     Dosage: 4000 MILLIGRAM, QD (4 SEPARATED DOSES)
     Route: 048
     Dates: start: 20210326, end: 20210401
  19. IRFEN [Concomitant]
     Active Substance: IBUPROFEN
     Dosage: UP TO 3X PER DAY, 1 400 MG TABLET
     Route: 048
     Dates: start: 20210321, end: 20210326

REACTIONS (1)
  - Pemphigoid [Recovered/Resolved]

NARRATIVE: CASE EVENT DATE: 20210228
